FAERS Safety Report 5162640-4 (Version None)
Quarter: 2006Q4

REPORT INFORMATION
  Report Type: 
  Country: None (occurrence: None)
  Receive Date: 20061201
  Receipt Date: 20061122
  Transmission Date: 20070319
  Serious: Yes (Hospitalization)
  Sender: FDA-Public Use
  Company Number: DE-AVENTIS-200613426DE

PATIENT
  Age: 68 Year
  Sex: Male
  Weight: 99.8 kg

DRUGS (2)
  1. TAXOTERE [Suspect]
     Indication: PROSTATE CANCER
     Route: 042
     Dates: start: 20040625, end: 20061108
  2. ESTRAMUSTIN [Suspect]
     Indication: PROSTATE CANCER
     Route: 048
     Dates: start: 20040624, end: 20061109

REACTIONS (4)
  - IMMOBILE [None]
  - MOBILITY DECREASED [None]
  - PERIPHERAL NERVE DESTRUCTION [None]
  - SENSORY LOSS [None]
